FAERS Safety Report 9729589 (Version 3)
Quarter: 2014Q4

REPORT INFORMATION
  Report Type: Spontaneous
  Country: US (occurrence: US)
  Receive Date: 20131204
  Receipt Date: 20141229
  Transmission Date: 20150529
  Serious: Yes (Other)
  Sender: FDA-Public Use
  Company Number: US-ENDO PHARMACEUTICALS INC.-ZOLP20120065

PATIENT
  Age: 49 Year
  Sex: Female
  Weight: 81.72 kg

DRUGS (1)
  1. ZOLPIDEM TARTRATE TABLETS 10MG [Suspect]
     Active Substance: ZOLPIDEM TARTRATE
     Indication: INSOMNIA
     Route: 048

REACTIONS (3)
  - Overdose [Recovered/Resolved]
  - Balance disorder [Recovered/Resolved]
  - Impaired driving ability [Recovered/Resolved]

NARRATIVE: CASE EVENT DATE: 20120310
